FAERS Safety Report 13054792 (Version 3)
Quarter: 2017Q2

REPORT INFORMATION
  Report Type: Spontaneous
  Country: US (occurrence: US)
  Receive Date: 20161222
  Receipt Date: 20170615
  Transmission Date: 20170830
  Serious: Yes (Death, Other)
  Sender: FDA-Public Use
  Company Number: US-SAOL THERAPEUTICS-2016SAO01275

PATIENT
  Sex: Male

DRUGS (6)
  1. TEMAZEPAM. [Concomitant]
     Active Substance: TEMAZEPAM
  2. FENTANYL TRANSDERMAL SYSTEM [Concomitant]
     Active Substance: FENTANYL
  3. ^IV DILAUDID^ [Concomitant]
  4. VALIUM [Concomitant]
     Active Substance: DIAZEPAM
  5. COMPOUNDED BACLOFEN [Suspect]
     Active Substance: BACLOFEN
     Indication: MUSCLE SPASTICITY
     Dosage: UNK UNK, \DAY
  6. ^PO MEDS^ (UNSPECIFIED) [Concomitant]

REACTIONS (3)
  - Paralysis [Unknown]
  - Respiratory disorder [Fatal]
  - Pain [Unknown]
